FAERS Safety Report 6607606-X (Version None)
Quarter: 2010Q1

REPORT INFORMATION
  Report Type: 
  Country: None (occurrence: None)
  Receive Date: 20100216
  Receipt Date: 20100204
  Transmission Date: 20100710
  Serious: Yes (Hospitalization, Other)
  Sender: FDA-Public Use
  Company Number: THYM-1001258

PATIENT
  Age: 58 Year
  Sex: Female
  Weight: 53.5 kg

DRUGS (32)
  1. THYMOGLOBULIN [Suspect]
     Indication: STEM CELL TRANSPLANT
     Dosage: 53MG, ONCE, INTRAVENOUS; 185 MG, ONCE, INTRAVENOUS
     Route: 042
     Dates: start: 20090520, end: 20090520
  2. FLUDARABINE PHOSPHATE [Concomitant]
  3. BUSULFAN (BUSULFAN) [Concomitant]
  4. CYCLOPHOSPHAMIDE [Concomitant]
  5. COMPRAZINE (PROCHOPERAZINE MALEATE) [Concomitant]
  6. BENADRYL [Concomitant]
  7. RESTORIL [Concomitant]
  8. CALCIUM CARBONATE [Concomitant]
  9. CANCIDAS (CASPOFUNGIN) [Concomitant]
  10. NOXAFIL [Concomitant]
  11. PROGRAF [Concomitant]
  12. ATIVAN [Concomitant]
  13. MAGNESIUM (MAGNESIUM) [Concomitant]
  14. AMINO ACIDS [Concomitant]
  15. CIPRO [Concomitant]
  16. CYMABLTA (DULOXETINE HYDROCHLORIDE) [Concomitant]
  17. FOSCAVIR [Concomitant]
  18. LYRICA [Concomitant]
  19. FLAGYL [Concomitant]
  20. NEUPOGEN [Concomitant]
  21. ULTRAM (TRAMADOL HYROCHLORIDE) [Concomitant]
  22. RESTASIS (CICLOSPORIN) [Concomitant]
  23. ZOVIRAX [Concomitant]
  24. TYLENOL [Concomitant]
  25. ONDANSETRON (ONSANSETRON) [Concomitant]
  26. PROTONIX [Concomitant]
  27. RE METHYLPHEN [Concomitant]
  28. SUCRALFATE [Concomitant]
  29. POTASSIUM CHLORIDE [Concomitant]
  30. HEPARIN [Concomitant]
  31. NEXIUM IV [Concomitant]
  32. NOVOLOG [Concomitant]

REACTIONS (8)
  - CLOSTRIDIUM DIFFICILE COLITIS [None]
  - CYTOMEGALOVIRUS ENTERITIS [None]
  - EROSIVE OESOPHAGITIS [None]
  - FIBROMYALGIA [None]
  - GASTRITIS [None]
  - HAEMOPTYSIS [None]
  - PANCYTOPENIA [None]
  - UPPER GASTROINTESTINAL HAEMORRHAGE [None]
